APPROVED DRUG PRODUCT: BUMETANIDE
Active Ingredient: BUMETANIDE
Strength: 0.25MG/ML
Dosage Form/Route: INJECTABLE;INJECTION
Application: A074613 | Product #001
Applicant: TEVA PARENTERAL MEDICINES INC
Approved: Nov 18, 1997 | RLD: No | RS: No | Type: DISCN